FAERS Safety Report 4372071-2 (Version None)
Quarter: 2004Q2

REPORT INFORMATION
  Report Type: 
  Country: None (occurrence: None)
  Receive Date: 20040602
  Receipt Date: 20040524
  Transmission Date: 20050107
  Serious: Yes (Hospitalization)
  Sender: FDA-Public Use
  Company Number: 200410158BFR

PATIENT
  Age: 73 Year
  Sex: Female

DRUGS (11)
  1. GLUCOR (ACARBOSE) [Suspect]
     Indication: DIABETES MELLITUS
     Dosage: 300 MG TOTAL DAILY ORAL
     Route: 048
     Dates: end: 20031203
  2. FUROSEMIDE [Suspect]
     Indication: ESSENTIAL HYPERTENSION
     Dosage: 20 MG, TOTAL DAILY, ORAL
     Route: 048
     Dates: end: 20031203
  3. NEURONTIN [Suspect]
     Dosage: 600 MG, TOTAL DAILY , ORAL
     Route: 048
     Dates: end: 20031205
  4. APROVEL (IRBESARTAN) [Suspect]
     Indication: ESSENTIAL HYPERTENSION
     Dosage: 300 MG, TOTAL DAILY, ORAL
     Route: 048
     Dates: end: 20031201
  5. TRAMADOL HCL [Suspect]
     Dosage: 150 MG, BID, ORAL
     Route: 048
     Dates: end: 20031201
  6. EFFEXOR [Suspect]
     Indication: DYSTHYMIC DISORDER
     Dosage: 75 MG, TOTAL DAILY , ORAL
     Route: 048
     Dates: end: 20031201
  7. OGAST (LANSOPRAZOLE) [Suspect]
     Dosage: 15 MG, TOTAL DAILY, ORAL
     Route: 048
     Dates: end: 20031201
  8. DIFRAREL [Suspect]
     Dosage: 300 MG, TOTAL DAILY, ORAL
     Route: 048
     Dates: end: 20031202
  9. ACETAMINOPHEN [Suspect]
     Dosage: BID, ORAL
     Route: 048
     Dates: end: 20031202
  10. AMLODIPINE BESYLATE [Suspect]
     Dosage: 10 MG, TOTAL DAILY, ORAL
     Route: 048
  11. VASTAREL (TRIMETAZIDINE HYDROCHLORIDE) [Suspect]
     Dosage: 60 MG, TOTAL DAILY, ORAL
     Route: 048

REACTIONS (2)
  - FALL [None]
  - TOXIC SKIN ERUPTION [None]
